FAERS Safety Report 18653520 (Version 1)
Quarter: 2020Q4

REPORT INFORMATION
  Report Type: Spontaneous
  Country: US (occurrence: US)
  Receive Date: 20201222
  Receipt Date: 20201222
  Transmission Date: 20210114
  Serious: Yes (Hospitalization)
  Sender: FDA-Public Use
  Company Number: None

PATIENT
  Age: 85 Year
  Sex: Male
  Weight: 113.9 kg

DRUGS (1)
  1. CASIRIVIMAB-IMDEVIMAB [Suspect]
     Active Substance: CASIRIVIMAB\IMDEVIMAB
     Indication: COVID-19
     Dosage: ?          OTHER FREQUENCY:ONCE;?
     Route: 042
     Dates: start: 20201215, end: 20201215

REACTIONS (8)
  - Lethargy [None]
  - Pyrexia [None]
  - Fatigue [None]
  - Oxygen saturation decreased [None]
  - Tremor [None]
  - Hypomagnesaemia [None]
  - Infusion related reaction [None]
  - Tachycardia [None]

NARRATIVE: CASE EVENT DATE: 20201215
